FAERS Safety Report 8197747-0 (Version None)
Quarter: 2012Q1

REPORT INFORMATION
  Report Type: 
  Country: None (occurrence: None)
  Receive Date: 20120309
  Receipt Date: 20120227
  Transmission Date: 20120608
  Serious: Yes (Hospitalization)
  Sender: FDA-Public Use
  Company Number: DE-JNJFOC-20120102924

PATIENT
  Age: 50 Year
  Sex: Male
  Weight: 67 kg

DRUGS (8)
  1. RITONAVIR [Suspect]
     Indication: HIV INFECTION
     Route: 048
     Dates: start: 20110620
  2. EZETIMIBE [Concomitant]
     Dosage: 10/20MG
     Route: 065
  3. RAMIPRIL [Concomitant]
     Route: 065
  4. TENOFOVIR DISOPROXIL FUMARATE [Concomitant]
     Route: 065
     Dates: start: 20110620
  5. EZETIMIBE [Concomitant]
     Dosage: DOSE 10/20MG
  6. NEBIVOLOL [Concomitant]
     Route: 065
  7. DARUNAVIR HYDRATE [Suspect]
     Indication: HIV INFECTION
     Route: 048
     Dates: start: 20110620
  8. ACETYLSALICYLIC ACID SRT [Concomitant]

REACTIONS (2)
  - CALCULUS URINARY [None]
  - DIVERTICULUM [None]
